FAERS Safety Report 17011735 (Version 1)
Quarter: 2019Q4

REPORT INFORMATION
  Report Type: Spontaneous
  Country: CA (occurrence: CA)
  Receive Date: 20191108
  Receipt Date: 20191108
  Transmission Date: 20200122
  Serious: Yes (Other)
  Sender: FDA-Public Use
  Company Number: CA-PFIZER INC-2019479746

PATIENT
  Age: 60 Year
  Sex: Female

DRUGS (1)
  1. GABAPENTIN. [Suspect]
     Active Substance: GABAPENTIN
     Indication: NEURALGIA
     Dosage: 600 MG, 4X/DAY
     Route: 048

REACTIONS (5)
  - Amnesia [Recovering/Resolving]
  - Tardive dyskinesia [Recovering/Resolving]
  - Off label use [Unknown]
  - Speech disorder [Recovering/Resolving]
  - Product use in unapproved indication [Unknown]
